FAERS Safety Report 8264749-5 (Version None)
Quarter: 2012Q2

REPORT INFORMATION
  Report Type: 
  Country: None (occurrence: None)
  Receive Date: 20120406
  Receipt Date: 20120329
  Transmission Date: 20120825
  Serious: Yes (Other)
  Sender: FDA-Public Use
  Company Number: CA-JNJFOC-20120400331

PATIENT
  Age: 34 Year
  Sex: Male

DRUGS (1)
  1. VERMOX [Suspect]
     Indication: PRODUCT USED FOR UNKNOWN INDICATION
     Route: 065
     Dates: start: 20120301

REACTIONS (6)
  - CONVULSION [None]
  - PAIN [None]
  - DYSPNOEA [None]
  - VISION BLURRED [None]
  - ASTHENIA [None]
  - NAUSEA [None]
